FAERS Safety Report 6187798-X (Version None)
Quarter: 2009Q2

REPORT INFORMATION
  Report Type: 
  Country: None (occurrence: None)
  Receive Date: 20090511
  Receipt Date: 20090511
  Transmission Date: 20091009
  Serious: Yes (Disabling)
  Sender: FDA-Public Use
  Company Number: None

PATIENT
  Sex: Male
  Weight: 54.4316 kg

DRUGS (2)
  1. VYTORIN [Suspect]
     Indication: BLOOD CHOLESTEROL INCREASED
     Dosage: 10/20 MG 1-MORNING ORAL
     Route: 048
     Dates: start: 20070131, end: 20070816
  2. ZETIA [Suspect]
     Indication: BLOOD CHOLESTEROL INCREASED
     Dosage: 10 MG 1-MORNING ORAL
     Route: 048
     Dates: start: 20070828, end: 20070906

REACTIONS (5)
  - MUSCLE ATROPHY [None]
  - MUSCULOSKELETAL STIFFNESS [None]
  - MYALGIA [None]
  - THINKING ABNORMAL [None]
  - WEIGHT DECREASED [None]
